FAERS Safety Report 7236045-6 (Version None)
Quarter: 2011Q1

REPORT INFORMATION
  Report Type: 
  Country: None (occurrence: None)
  Receive Date: 20110120
  Receipt Date: 20110119
  Transmission Date: 20110831
  Serious: Yes (Other)
  Sender: FDA-Public Use
  Company Number: GB-JNJCH-2011001564

PATIENT
  Age: 60 Year

DRUGS (7)
  1. ALLOPURINOL [Suspect]
     Indication: PRODUCT USED FOR UNKNOWN INDICATION
     Dosage: TEXT:300MG ONCE DAILY
     Route: 065
  2. METFORMIN [Suspect]
     Indication: PRODUCT USED FOR UNKNOWN INDICATION
     Dosage: TEXT:1500MG ONCE DAILY
     Route: 065
  3. VALSARTAN [Suspect]
     Indication: PRODUCT USED FOR UNKNOWN INDICATION
     Dosage: TEXT:120MG ONCE DAILY
     Route: 065
  4. MIRTAZAPINE [Suspect]
     Indication: DEPRESSION
     Dosage: TEXT:UNKNOWN
     Route: 065
  5. CETIRIZINE HYDROCHLORIDE [Suspect]
     Indication: PRODUCT USED FOR UNKNOWN INDICATION
     Dosage: TEXT:10MG ONCE DAILY
     Route: 065
  6. COLCHICINE [Suspect]
     Indication: PRODUCT USED FOR UNKNOWN INDICATION
     Dosage: TEXT:1MG ONCE DAILY
     Route: 065
  7. DOXAZOSIN [Suspect]
     Indication: PRODUCT USED FOR UNKNOWN INDICATION
     Dosage: TEXT:4MG ONCE DAILY
     Route: 065

REACTIONS (1)
  - PANCREATITIS ACUTE [None]
